FAERS Safety Report 25175305 (Version 1)
Quarter: 2025Q2

REPORT INFORMATION
  Report Type: Spontaneous
  Country: CN (occurrence: CN)
  Receive Date: 20250408
  Receipt Date: 20250408
  Transmission Date: 20250717
  Serious: Yes (Hospitalization, Other)
  Sender: PURDUE
  Company Number: CN-NAPPMUNDI-GBR-2025-0124655

PATIENT
  Age: 58 Year
  Sex: Male

DRUGS (13)
  1. OXYCODONE HYDROCHLORIDE [Suspect]
     Active Substance: OXYCODONE HYDROCHLORIDE
     Indication: Pain
     Dosage: 20 MILLIGRAM, Q12H
     Route: 048
     Dates: start: 202305
  2. OXYCODONE HYDROCHLORIDE [Suspect]
     Active Substance: OXYCODONE HYDROCHLORIDE
     Indication: Neuralgia
     Dosage: 120 MILLIGRAM, Q12H
     Route: 048
     Dates: start: 20230620, end: 20230622
  3. OXYCODONE HYDROCHLORIDE [Suspect]
     Active Substance: OXYCODONE HYDROCHLORIDE
     Dosage: 60 MILLIGRAM, Q12H
     Route: 048
     Dates: start: 2023
  4. OXYCODONE HYDROCHLORIDE [Suspect]
     Active Substance: OXYCODONE HYDROCHLORIDE
     Dosage: 150 MILLIGRAM, Q12H
     Route: 048
     Dates: start: 202307
  5. GABAPENTIN [Suspect]
     Active Substance: GABAPENTIN
     Indication: Neuralgia
     Dosage: 0.1 GRAM, TID
     Route: 048
     Dates: start: 202305, end: 2023
  6. GABAPENTIN [Suspect]
     Active Substance: GABAPENTIN
     Dosage: 0.2 GRAM, TID
     Route: 048
     Dates: start: 202307
  7. MORPHINE HYDROCHLORIDE [Suspect]
     Active Substance: MORPHINE HYDROCHLORIDE
     Indication: Analgesic therapy
     Route: 048
     Dates: start: 2023
  8. MORPHINE HYDROCHLORIDE [Suspect]
     Active Substance: MORPHINE HYDROCHLORIDE
     Indication: Analgesic therapy
     Route: 058
     Dates: start: 2023
  9. MORPHINE HYDROCHLORIDE [Suspect]
     Active Substance: MORPHINE HYDROCHLORIDE
     Dosage: 100 MILLIGRAM, DAILY
     Route: 065
     Dates: start: 202306
  10. FENTANYL [Suspect]
     Active Substance: FENTANYL
     Indication: Analgesic therapy
     Dosage: 24.75 MILLIGRAM, Q72H
     Route: 062
     Dates: start: 202306
  11. HYDROMORPHONE [Suspect]
     Active Substance: HYDROMORPHONE
     Indication: Analgesic therapy
     Route: 065
     Dates: start: 20230625
  12. HYDROMORPHONE [Suspect]
     Active Substance: HYDROMORPHONE
     Route: 065
     Dates: start: 202306
  13. SODIUM CHLORIDE [Suspect]
     Active Substance: SODIUM CHLORIDE
     Indication: Analgesic therapy
     Route: 065
     Dates: start: 202306

REACTIONS (8)
  - Pain [Recovered/Resolved]
  - Suicidal ideation [Recovered/Resolved]
  - Dyschezia [Recovered/Resolved]
  - Abdominal distension [Recovered/Resolved]
  - Fatigue [Recovered/Resolved]
  - Decreased appetite [Recovered/Resolved]
  - Breakthrough pain [Recovered/Resolved]
  - Depressed mood [Recovered/Resolved]

NARRATIVE: CASE EVENT DATE: 20230101
